APPROVED DRUG PRODUCT: CYCLOPHOSPHAMIDE
Active Ingredient: CYCLOPHOSPHAMIDE
Strength: 2GM/VIAL
Dosage Form/Route: INJECTABLE;INJECTION
Application: A215089 | Product #003 | TE Code: AP
Applicant: SUNNY PHARMTECH INC
Approved: Oct 26, 2023 | RLD: No | RS: No | Type: RX